FAERS Safety Report 5761900-3 (Version None)
Quarter: 2008Q2

REPORT INFORMATION
  Report Type: 
  Country: None (occurrence: None)
  Receive Date: 20080606
  Receipt Date: 20080529
  Transmission Date: 20081010
  Serious: Yes (Hospitalization)
  Sender: FDA-Public Use
  Company Number: FR-PFIZER INC-2008047456

PATIENT
  Sex: Male

DRUGS (6)
  1. ATARAX [Suspect]
     Indication: ANXIETY
     Route: 048
  2. LYSANXIA [Suspect]
     Indication: ANXIETY
     Route: 048
  3. LITHIUM CARBONATE [Suspect]
     Indication: BIPOLAR DISORDER
     Route: 048
  4. CYMBALTA [Suspect]
     Indication: DEPRESSION
     Route: 048
     Dates: start: 20080409, end: 20080423
  5. ESPERAL [Suspect]
     Indication: ALCOHOL ABUSE
     Route: 048
  6. IMOVANE [Suspect]
     Indication: INSOMNIA
     Route: 048

REACTIONS (4)
  - ALANINE AMINOTRANSFERASE INCREASED [None]
  - ASPARTATE AMINOTRANSFERASE INCREASED [None]
  - GAMMA-GLUTAMYLTRANSFERASE INCREASED [None]
  - TRANSAMINASES INCREASED [None]
